FAERS Safety Report 15281499 (Version 1)
Quarter: 2018Q3

REPORT INFORMATION
  Report Type: Spontaneous
  Country: US (occurrence: US)
  Receive Date: 20180731
  Receipt Date: 20180731
  Transmission Date: 20181010
  Serious: Yes (Other)
  Sender: FDA-Public Use
  Company Number: None

PATIENT
  Age: 53 Year
  Sex: Female
  Weight: 89.55 kg

DRUGS (11)
  1. LYRICA [Concomitant]
     Active Substance: PREGABALIN
  2. CARDIZEM [Concomitant]
     Active Substance: DILTIAZEM HYDROCHLORIDE
  3. PREMARIN [Concomitant]
     Active Substance: ESTROGENS, CONJUGATED
  4. IMITREX [Concomitant]
     Active Substance: SUMATRIPTAN SUCCINATE
  5. OCREVUS [Concomitant]
     Active Substance: OCRELIZUMAB
  6. DITRIPAN [Concomitant]
  7. OCREVUS [Suspect]
     Active Substance: OCRELIZUMAB
     Indication: MULTIPLE SCLEROSIS
     Dosage: ?          OTHER FREQUENCY:TWICE A YEAR;?
     Route: 042
  8. XARELTO [Concomitant]
     Active Substance: RIVAROXABAN
  9. XANTAC [Concomitant]
  10. VITAMIN D [Concomitant]
     Active Substance: CHOLECALCIFEROL
  11. PRILOSEC [Concomitant]
     Active Substance: OMEPRAZOLE MAGNESIUM

REACTIONS (3)
  - Peripheral swelling [None]
  - Swelling face [None]
  - Cardiac failure congestive [None]

NARRATIVE: CASE EVENT DATE: 20180507
